FAERS Safety Report 21682340 (Version 3)
Quarter: 2023Q1

REPORT INFORMATION
  Report Type: Other
  Country: DE (occurrence: None)
  Receive Date: 20221205
  Receipt Date: 20230211
  Transmission Date: 20230418
  Serious: Yes (Hospitalization)
  Sender: FDA-Public Use
  Company Number: DE-ROCHE-2210359

PATIENT
  Age: 29 Year
  Sex: Male

DRUGS (5)
  1. OCREVUS [Suspect]
     Active Substance: OCRELIZUMAB
     Indication: Primary progressive multiple sclerosis
     Dosage: ACCORDING SUMMARY OF PRODUCT CHARACTERISTICS
     Route: 042
     Dates: start: 20181016, end: 20190409
  2. OCREVUS [Suspect]
     Active Substance: OCRELIZUMAB
     Route: 042
     Dates: start: 20190409, end: 20190409
  3. BACLOFEN [Concomitant]
     Active Substance: BACLOFEN
  4. DALFAMPRIDINE [Concomitant]
     Active Substance: DALFAMPRIDINE
  5. CORTISONE [Concomitant]
     Active Substance: CORTISONE
     Route: 042

REACTIONS (2)
  - Heart rate increased [Recovered/Resolved]
  - Viral infection [Recovered/Resolved]

NARRATIVE: CASE EVENT DATE: 20181030
